FAERS Safety Report 13966368 (Version 3)
Quarter: 2017Q4

REPORT INFORMATION
  Report Type: Report from Study
  Country: US (occurrence: US)
  Receive Date: 20170913
  Receipt Date: 20171016
  Transmission Date: 20180320
  Serious: Yes (Other)
  Sender: FDA-Public Use
  Company Number: US-GILEAD-2017-0288190

PATIENT
  Age: 58 Year
  Sex: Male
  Weight: 94.79 kg

DRUGS (2)
  1. SOFOSBUVIR W/VELPATASVIR [Suspect]
     Active Substance: SOFOSBUVIR\VELPATASVIR
     Dosage: 1 DF, QD
     Route: 048
     Dates: start: 20170707
  2. SOFOSBUVIR W/VELPATASVIR [Suspect]
     Active Substance: SOFOSBUVIR\VELPATASVIR
     Indication: CHRONIC HEPATITIS C
     Dosage: 1 DF, QD
     Route: 048
     Dates: start: 20170701

REACTIONS (10)
  - Cardiac failure congestive [Unknown]
  - Memory impairment [Recovered/Resolved]
  - Hunger [Unknown]
  - Fatigue [Unknown]
  - Pain [Unknown]
  - Dyspnoea [Unknown]
  - Rash [Recovered/Resolved]
  - Pulmonary oedema [Unknown]
  - Energy increased [Not Recovered/Not Resolved]
  - Feeling abnormal [Recovered/Resolved]

NARRATIVE: CASE EVENT DATE: 201708
